FAERS Safety Report 14824710 (Version 1)
Quarter: 2018Q2

REPORT INFORMATION
  Report Type: Spontaneous
  Country: GR (occurrence: GR)
  Receive Date: 20180429
  Receipt Date: 20180429
  Transmission Date: 20180711
  Serious: Yes (Hospitalization, Disabling)
  Sender: FDA-Public Use
  Company Number: GR-CONCORDIA PHARMACEUTICALS INC.-E2B_00010044

PATIENT
  Age: 70 Year
  Sex: Male

DRUGS (8)
  1. DIGOXIN. [Suspect]
     Active Substance: DIGOXIN
     Indication: CARDIAC FAILURE
     Route: 065
  2. CARVEDILOL. [Concomitant]
     Active Substance: CARVEDILOL
     Indication: HYPERTENSION
  3. RIVAROXABAN [Suspect]
     Active Substance: RIVAROXABAN
     Indication: ATRIAL FIBRILLATION
     Route: 065
  4. GLYCERYL TRINITRATE [Suspect]
     Active Substance: NITROGLYCERIN
     Indication: CARDIAC FAILURE
     Route: 065
  5. RAMIPRIL. [Concomitant]
     Active Substance: RAMIPRIL
     Indication: HYPERTENSION
  6. FUROSEMIDE. [Concomitant]
     Active Substance: FUROSEMIDE
     Indication: HYPERTENSION
     Route: 065
  7. FUROSEMIDE. [Concomitant]
     Active Substance: FUROSEMIDE
     Indication: DIURETIC THERAPY
     Route: 065
  8. EPLERENONE. [Concomitant]
     Active Substance: EPLERENONE
     Indication: HYPERTENSION
     Route: 065

REACTIONS (19)
  - Hepatomegaly [Unknown]
  - Renal impairment [Unknown]
  - Abdominal rigidity [Unknown]
  - Mitral valve incompetence [Unknown]
  - Pulmonary arterial pressure increased [Unknown]
  - Atrial fibrillation [Unknown]
  - Bundle branch block left [Unknown]
  - Disease progression [Unknown]
  - Fatigue [Unknown]
  - Cardiac murmur [Unknown]
  - Cardiac failure [Unknown]
  - Normochromic anaemia [Unknown]
  - Treatment failure [Unknown]
  - Tricuspid valve incompetence [Unknown]
  - Jugular vein distension [Unknown]
  - Drug ineffective [Unknown]
  - Ejection fraction decreased [Unknown]
  - Dyspnoea [Unknown]
  - Arrhythmia [Unknown]
